FAERS Safety Report 4777295-8 (Version None)
Quarter: 2005Q3

REPORT INFORMATION
  Report Type: 
  Country: None (occurrence: None)
  Receive Date: 20050915
  Receipt Date: 20050907
  Transmission Date: 20060218
  Serious: Yes (Other)
  Sender: FDA-Public Use
  Company Number: ESWYE963608SEP05

PATIENT
  Sex: 0

DRUGS (2)
  1. TAZOCEL [Suspect]
     Dosage: INTRAVENOUS
     Route: 042
  2. EFFERALGAN (PARACETAMOL) [Concomitant]

REACTIONS (2)
  - EXTRAVASATION [None]
  - INJECTION SITE OEDEMA [None]
